FAERS Safety Report 7992497-5 (Version None)
Quarter: 2011Q4

REPORT INFORMATION
  Report Type: 
  Country: None (occurrence: None)
  Receive Date: 20111219
  Receipt Date: 20111213
  Transmission Date: 20120403
  Serious: Yes (Death, Hospitalization, Other)
  Sender: FDA-Public Use
  Company Number: US-PFIZER INC-2011262625

PATIENT
  Sex: Male
  Weight: 6.36 kg

DRUGS (7)
  1. REVATIO [Suspect]
     Dosage: 6 MG, 3X/DAY
  2. REMODULIN [Suspect]
     Indication: PULMONARY ARTERIAL HYPERTENSION
  3. BOSENTAN [Suspect]
  4. REMODULIN [Suspect]
     Indication: COR PULMONALE CHRONIC
     Dosage: 72.576 UG/KG, 0.0504 UG/KG/MIN
     Route: 058
     Dates: start: 20110830, end: 20110929
  5. ACETYLSALICYLIC ACID [Concomitant]
     Indication: PULMONARY ARTERIAL HYPERTENSION
     Dosage: 40 MG, QD
     Dates: end: 20110929
  6. COUMADIN [Concomitant]
     Dosage: UNK
  7. ENALAPRIL [Concomitant]
     Indication: HYPERTENSION
     Dosage: 1 MG, 2X/DAY
     Dates: end: 20110929

REACTIONS (7)
  - PYREXIA [None]
  - MULTI-ORGAN FAILURE [None]
  - LIVER FUNCTION TEST ABNORMAL [None]
  - INTESTINAL ISCHAEMIA [None]
  - SEPSIS [None]
  - ABDOMINAL DISTENSION [None]
  - HYPERTENSION [None]
